FAERS Safety Report 20707911 (Version 2)
Quarter: 2022Q3

REPORT INFORMATION
  Report Type: Spontaneous
  Country: US (occurrence: US)
  Receive Date: 20220414
  Receipt Date: 20220725
  Transmission Date: 20221027
  Serious: Yes (Hospitalization, Other)
  Sender: FDA-Public Use
  Company Number: US-SUN PHARMACEUTICAL INDUSTRIES LTD-2022R1-332532

PATIENT
  Age: 28 Year
  Sex: Female

DRUGS (1)
  1. CLONIDINE [Suspect]
     Active Substance: CLONIDINE
     Indication: Product used for unknown indication
     Dosage: UNK (30 PILLS)
     Route: 048

REACTIONS (10)
  - Overdose [Unknown]
  - Vasospasm [Recovering/Resolving]
  - Cardiac failure [Recovering/Resolving]
  - Suicide attempt [Unknown]
  - Off label use [Unknown]
  - Somnolence [Unknown]
  - Chest pain [Unknown]
  - Bradycardia [Unknown]
  - Congestive cardiomyopathy [Unknown]
  - Ejection fraction decreased [Unknown]
